FAERS Safety Report 14198762 (Version 1)
Quarter: 2017Q4

REPORT INFORMATION
  Report Type: Spontaneous
  Country: PR (occurrence: PR)
  Receive Date: 20171117
  Receipt Date: 20171117
  Transmission Date: 20180321
  Serious: Yes (Hospitalization)
  Sender: FDA-Public Use
  Company Number: PR-PFIZER INC-2017494086

PATIENT
  Sex: Male
  Weight: 108 kg

DRUGS (5)
  1. PROPANOLOL [Concomitant]
     Active Substance: PROPRANOLOL HYDROCHLORIDE
     Dosage: 40 MG, TWICE PER DAY
     Dates: start: 1983
  2. COUMADIN [Concomitant]
     Active Substance: WARFARIN SODIUM
     Indication: ANTICOAGULANT THERAPY
     Dosage: 5 MG (ONE PILL), ONCE PER DAY
     Dates: start: 1983
  3. DIGOXIN. [Concomitant]
     Active Substance: DIGOXIN
     Dosage: 250 (UNKNOWN UNITS), ONE IN THE MORNING AND ONE IN AFTERNOON
     Dates: start: 1983
  4. NORPACE [Suspect]
     Active Substance: DISOPYRAMIDE PHOSPHATE
     Indication: CARDIAC OPERATION
  5. NORPACE [Suspect]
     Active Substance: DISOPYRAMIDE PHOSPHATE
     Indication: HEART RATE ABNORMAL
     Dosage: 300 MG (TWO CAPSULES), TWICE PER DAY
     Route: 048
     Dates: start: 1983

REACTIONS (1)
  - Malaise [Recovered/Resolved]
